FAERS Safety Report 7995844-3 (Version None)
Quarter: 2011Q4

REPORT INFORMATION
  Report Type: 
  Country: None (occurrence: None)
  Receive Date: 20111216
  Receipt Date: 20111209
  Transmission Date: 20120403
  Serious: Yes (Death)
  Sender: FDA-Public Use
  Company Number: 2011SP057751

PATIENT
  Age: 60 Year
  Sex: Male

DRUGS (1)
  1. INTRON A [Suspect]
     Indication: PRODUCT USED FOR UNKNOWN INDICATION

REACTIONS (2)
  - EAR INFECTION [None]
  - CENTRAL NERVOUS SYSTEM INFECTION [None]
